FAERS Safety Report 7135243-X (Version None)
Quarter: 2010Q4

REPORT INFORMATION
  Report Type: 
  Country: None (occurrence: None)
  Receive Date: 20101203
  Receipt Date: 20101123
  Transmission Date: 20110411
  Serious: Yes (Hospitalization)
  Sender: FDA-Public Use
  Company Number: A0770504A

PATIENT
  Age: 65 Year
  Sex: Female
  Weight: 118.2 kg

DRUGS (11)
  1. AVANDIA [Suspect]
     Dosage: 8MG PER DAY
     Route: 048
     Dates: start: 20000501, end: 20061201
  2. LIPITOR [Concomitant]
  3. METFORMIN [Concomitant]
  4. INSULIN [Concomitant]
  5. BYETTA [Concomitant]
  6. PREVACID [Concomitant]
  7. LEVOTHYROXINE SODIUM [Concomitant]
  8. BENAZEPRIL [Concomitant]
  9. GABAPENTIN [Concomitant]
  10. CELEBREX [Concomitant]
  11. ZETIA [Concomitant]

REACTIONS (3)
  - CARDIAC FAILURE CONGESTIVE [None]
  - CORONARY ARTERY DISEASE [None]
  - MYOCARDIAL INFARCTION [None]
